FAERS Safety Report 22931795 (Version 5)
Quarter: 2024Q4

REPORT INFORMATION
  Report Type: Spontaneous
  Country: CA (occurrence: CA)
  Receive Date: 20230911
  Receipt Date: 20241118
  Transmission Date: 20250115
  Serious: Yes (Hospitalization, Other)
  Sender: BOEHRINGER INGELHEIM
  Company Number: CA-BoehringerIngelheim-2023-BI-259763

PATIENT
  Age: 35 Year
  Sex: Female

DRUGS (14)
  1. SPIRIVA [Suspect]
     Active Substance: TIOTROPIUM BROMIDE MONOHYDRATE
     Indication: Asthma
     Route: 055
  2. PREDNISONE [Suspect]
     Active Substance: PREDNISONE
     Indication: Asthma
  3. PREDNISONE [Suspect]
     Active Substance: PREDNISONE
  4. OMALIZUMAB [Suspect]
     Active Substance: OMALIZUMAB
     Indication: Asthma
  5. OMALIZUMAB [Suspect]
     Active Substance: OMALIZUMAB
  6. MIRTAZAPINE [Suspect]
     Active Substance: MIRTAZAPINE
     Indication: Product used for unknown indication
  7. MIRTAZAPINE [Suspect]
     Active Substance: MIRTAZAPINE
  8. DUPILUMAB [Suspect]
     Active Substance: DUPILUMAB
     Indication: Asthma
  9. DUPILUMAB [Suspect]
     Active Substance: DUPILUMAB
  10. FLUTICASONE FUROATE [Suspect]
     Active Substance: FLUTICASONE FUROATE
     Indication: Asthma
  11. FLUTICASONE FUROATE [Suspect]
     Active Substance: FLUTICASONE FUROATE
     Route: 055
  12. VILANTEROL [Suspect]
     Active Substance: VILANTEROL
     Indication: Asthma
  13. VILANTEROL [Suspect]
     Active Substance: VILANTEROL
     Route: 055
  14. OXYGEN [Suspect]
     Active Substance: OXYGEN
     Indication: Asthma
     Route: 045

REACTIONS (7)
  - Therapeutic product ineffective [Unknown]
  - Maternal exposure during pregnancy [Unknown]
  - Diabetes mellitus [Unknown]
  - Steroid diabetes [Unknown]
  - Premature delivery [Unknown]
  - Gestational hypertension [Unknown]
  - Live birth [Unknown]
